FAERS Safety Report 9444915 (Version 4)
Quarter: 2013Q3

REPORT INFORMATION
  Report Type: Report from Study
  Country: DE (occurrence: DE)
  Receive Date: 20130807
  Receipt Date: 20130930
  Transmission Date: 20140515
  Serious: Yes (Hospitalization, Other)
  Sender: FDA-Public Use
  Company Number: PHHY2013DE084031

PATIENT
  Age: 50 Year
  Sex: Female
  Weight: 75.7 kg

DRUGS (44)
  1. MYCOPHENOLATE MOFETIL [Suspect]
     Indication: RENAL TRANSPLANT
     Dosage: 2000 MG, BID
     Route: 048
     Dates: start: 20090518
  2. MYCOPHENOLATE MOFETIL [Suspect]
     Dosage: UNK UKN, UNK
     Dates: start: 20090715
  3. MYCOPHENOLATE MOFETIL [Suspect]
     Dosage: 2000 MG, UNK
     Route: 048
     Dates: start: 20090818
  4. MYCOPHENOLATE MOFETIL [Suspect]
     Dosage: 2000 MG, UNK
     Route: 048
     Dates: start: 20100111
  5. MYCOPHENOLATE MOFETIL [Suspect]
     Dosage: 2000 MG, UNK
     Route: 048
     Dates: start: 20100427
  6. MYCOPHENOLATE MOFETIL [Suspect]
     Dosage: 1000 MG, UNK
     Route: 042
     Dates: start: 20100426
  7. PREDNISOLONE [Suspect]
     Indication: RENAL TRANSPLANT
     Dosage: 20 MG, UNK
     Route: 048
     Dates: start: 20090618, end: 20090618
  8. PREDNISOLONE [Suspect]
     Dosage: 15 MG, QD
     Dates: start: 20090706
  9. PREDNISOLONE [Suspect]
     Dosage: UNK UKN, UNK
     Dates: start: 20090715
  10. PREDNISOLONE [Suspect]
     Dosage: 15 MG, UNK
     Dates: start: 20090718
  11. PREDNISOLONE [Suspect]
     Dosage: 10 MG, UNK
     Dates: start: 20090721
  12. PREDNISOLONE [Suspect]
     Dosage: 10 MG, UNK
     Dates: start: 20090727
  13. PREDNISOLONE [Suspect]
     Dosage: 7.5 MG, UNK
     Dates: start: 20090817
  14. PREDNISOLONE [Suspect]
     Dosage: 5 MG, UNK
     Dates: start: 20090828
  15. PREDNISOLONE [Suspect]
     Dosage: UNK UKN, UNK
     Dates: start: 20100425
  16. PREDNISOLONE [Suspect]
     Dosage: 15 MG, QD
     Route: 048
     Dates: start: 20090518
  17. BASILIXIMAB [Suspect]
     Indication: RENAL TRANSPLANT
     Dosage: 20 MG, BID
     Route: 048
     Dates: start: 20090518, end: 20090521
  18. BASILIXIMAB [Suspect]
     Dosage: 20 MG, UNK
     Route: 048
     Dates: start: 20090522
  19. TACROLIMUS [Suspect]
     Indication: RENAL TRANSPLANT
     Dosage: 13 MG, UNK
     Route: 048
     Dates: start: 20090518
  20. TACROLIMUS [Suspect]
     Dosage: 13 MG, UNK
     Route: 048
     Dates: start: 20090707
  21. TACROLIMUS [Suspect]
     Dosage: UNK
     Dates: start: 20090715
  22. TACROLIMUS [Suspect]
     Dosage: 12.5 MG, UNK
     Dates: start: 20090721
  23. TACROLIMUS [Suspect]
     Dosage: 8 MG, UNK
     Dates: start: 20090723
  24. TACROLIMUS [Suspect]
     Dosage: 7 MG, UNK
     Dates: start: 20090817
  25. TACROLIMUS [Suspect]
     Dosage: 6 MG, UNK
     Dates: start: 20090822
  26. TACROLIMUS [Suspect]
     Dosage: 6 MG, UNK
     Route: 048
     Dates: start: 20100428
  27. TACROLIMUS [Suspect]
     Dosage: 6 MG, UNK
     Route: 048
     Dates: start: 20100111
  28. TACROLIMUS [Suspect]
     Dosage: 3 MG, UNK
     Dates: start: 20100426
  29. LEVOTHYROXINE [Concomitant]
     Dosage: 75 UG, QD
  30. LEVOTHYROXINE [Concomitant]
     Dosage: 50 UG, QD
  31. PANTOPRAZOLE [Concomitant]
     Dosage: 40 MG, QD
     Dates: start: 20090518
  32. IDEOS [Concomitant]
     Dosage: 2 OT, QD
  33. ACTRAPID//INSULIN HUMAN [Concomitant]
     Dosage: 18 IU, QD
     Route: 058
  34. LEVEMIR [Concomitant]
     Dosage: 10 IU, QD
  35. EFEROX [Concomitant]
     Dosage: 75 UG, BID
  36. FERRO SANOL DUODENAL [Concomitant]
     Dosage: 1 DF, QD
  37. COTRIM FORTE [Concomitant]
     Dosage: 1 DF, QW3
     Dates: start: 200910
  38. COTRIM FORTE [Concomitant]
     Dosage: 800/160 MG DAILY
     Dates: start: 20090518
  39. AMLODIPINE [Concomitant]
     Dosage: 5 MG, UNK
  40. TOREM [Concomitant]
     Dosage: 5 MG, QD
  41. AMPHO MORONAL [Concomitant]
  42. INSULIN L [Concomitant]
  43. SULFAMETHOXAZOLE W/TRIMETHOPRIM [Concomitant]
     Dosage: 960 MG (EVERY MONDAY, WEDNESDAY AND FRIDAY)
  44. FRAXIPARINE [Concomitant]
     Dosage: 0.2 ML, QD

REACTIONS (26)
  - Haematuria [Recovered/Resolved]
  - Lymphocele [Recovered/Resolved]
  - General physical health deterioration [Unknown]
  - Ureteric dilatation [Unknown]
  - Blood creatinine increased [Recovered/Resolved with Sequelae]
  - Diabetes mellitus [Unknown]
  - Blood glucose increased [Unknown]
  - Bacteriuria [Recovered/Resolved]
  - Urosepsis [Recovered/Resolved]
  - Dysuria [Recovered/Resolved]
  - Chills [Unknown]
  - Pyrexia [Unknown]
  - Gastroenteritis [Recovered/Resolved]
  - Diarrhoea [Recovering/Resolving]
  - Vomiting [Recovering/Resolving]
  - Nausea [Recovered/Resolved]
  - Dehydration [Unknown]
  - Abdominal discomfort [Unknown]
  - Kidney transplant rejection [Recovered/Resolved]
  - Blood urea increased [Unknown]
  - Pollakiuria [Unknown]
  - Bladder pain [Unknown]
  - Heart rate decreased [Unknown]
  - Headache [Unknown]
  - Oedema peripheral [Unknown]
  - Asthenia [Unknown]
